FAERS Safety Report 6170648-5 (Version None)
Quarter: 2009Q2

REPORT INFORMATION
  Report Type: 
  Country: None (occurrence: None)
  Receive Date: 20090428
  Receipt Date: 20090422
  Transmission Date: 20091009
  Serious: No
  Sender: FDA-Public Use
  Company Number: US-ELI_LILLY_AND_COMPANY-US200904001548

PATIENT
  Sex: Female

DRUGS (7)
  1. FORTEO [Suspect]
     Indication: OSTEOPOROSIS
     Dosage: 20 UG, DAILY (1/D)
     Dates: start: 20080101
  2. LYRICA [Concomitant]
     Indication: FIBROMYALGIA
  3. ULTRAM [Concomitant]
  4. IBUPROFEN [Concomitant]
     Dosage: UNK, AS NEEDED
  5. LASIX [Concomitant]
  6. POTASSIUM CHLORIDE [Concomitant]
  7. VITAMIN B-12 [Concomitant]
     Route: 050

REACTIONS (1)
  - NO ADVERSE EVENT [None]
